FAERS Safety Report 23241882 (Version 1)
Quarter: 2023Q4

REPORT INFORMATION
  Report Type: Spontaneous
  Country: US (occurrence: None)
  Receive Date: 20231129
  Receipt Date: 20231129
  Transmission Date: 20240109
  Serious: Yes (Hospitalization)
  Sender: FDA-Public Use
  Company Number: None

PATIENT
  Age: 30 Year
  Sex: Female
  Weight: 103.5 kg

DRUGS (5)
  1. ARIPIPRAZOLE [Suspect]
     Active Substance: ARIPIPRAZOLE
  2. ABILIFY [Concomitant]
     Active Substance: ARIPIPRAZOLE
  3. TOPAMAX [Concomitant]
     Active Substance: TOPIRAMATE
  4. RITALIN [Concomitant]
     Active Substance: METHYLPHENIDATE HYDROCHLORIDE
  5. PROZAC [Concomitant]
     Active Substance: FLUOXETINE HYDROCHLORIDE

REACTIONS (5)
  - Abnormal behaviour [None]
  - Weight increased [None]
  - Compulsive shopping [None]
  - Suicidal ideation [None]
  - Overdose [None]

NARRATIVE: CASE EVENT DATE: 20191020
